FAERS Safety Report 9288388 (Version 3)
Quarter: 2013Q3

REPORT INFORMATION
  Report Type: Spontaneous
  Country: IE (occurrence: IE)
  Receive Date: 20130514
  Receipt Date: 20130717
  Transmission Date: 20140515
  Serious: Yes (Other)
  Sender: FDA-Public Use
  Company Number: IE-PFIZER INC-2013092536

PATIENT
  Age: 55 Year
  Sex: Male

DRUGS (3)
  1. LYRICA [Suspect]
     Indication: GENERALISED ANXIETY DISORDER
     Dosage: 75 MG, 2X/DAY
     Route: 048
     Dates: start: 2010
  2. FLUPHENAZINE DECANOATE [Concomitant]
     Indication: SCHIZOPHRENIA
     Dosage: 50 MG, 3X/DAY
     Route: 030
     Dates: start: 1980
  3. HEROIN [Concomitant]

REACTIONS (1)
  - Drug abuse [Recovered/Resolved]
